FAERS Safety Report 23025722 (Version 2)
Quarter: 2023Q4

REPORT INFORMATION
  Report Type: Spontaneous
  Country: US (occurrence: US)
  Receive Date: 20231004
  Receipt Date: 20231114
  Transmission Date: 20240110
  Serious: No
  Sender: FDA-Public Use
  Company Number: US-BRISTOL-MYERS SQUIBB COMPANY-2023-140155

PATIENT
  Age: 96 Year
  Sex: Female

DRUGS (1)
  1. IDHIFA [Suspect]
     Active Substance: ENASIDENIB MESYLATE
     Indication: Product used for unknown indication
     Route: 048

REACTIONS (10)
  - Hypoacusis [Unknown]
  - Visual impairment [Unknown]
  - Fall [Unknown]
  - Skin abrasion [Unknown]
  - Skin abrasion [Unknown]
  - Urinary tract infection [Unknown]
  - Oedema peripheral [Unknown]
  - Rash [Unknown]
  - Drug hypersensitivity [Unknown]
  - Pruritus [Unknown]
